FAERS Safety Report 17004096 (Version 1)
Quarter: 2019Q4

REPORT INFORMATION
  Report Type: Report from Study
  Country: ES (occurrence: ES)
  Receive Date: 20191107
  Receipt Date: 20191107
  Transmission Date: 20200122
  Serious: Yes (Hospitalization)
  Sender: FDA-Public Use
  Company Number: ES-TEVA-2019-ES-1132472

PATIENT
  Age: 62 Year
  Sex: Male

DRUGS (6)
  1. ENALAPRIL MALEATO (2142MA [Suspect]
     Active Substance: ENALAPRIL MALEATE
     Indication: HYPERTENSION
     Dosage: 20 MG 1 DAYS
     Route: 048
     Dates: start: 2013, end: 20180103
  2. HIDROCLOROTIAZIDA (1343A) [Interacting]
     Active Substance: HYDROCHLOROTHIAZIDE
     Indication: HYPERTENSION
     Dosage: 12.5 MG 1 DAYS
     Route: 048
     Dates: start: 2013, end: 20180103
  3. AMLODIPINO (2503A) [Concomitant]
     Active Substance: AMLODIPINE BESYLATE
     Indication: HYPERTENSION
     Dosage: 10 MG 1 DAYS
     Route: 048
     Dates: start: 20130715
  4. PRIMPERAN 10 MG COMPRIMIDOS , 30 COMPRIMIDOS [Concomitant]
     Dosage: 30 MG 1 DAYS
     Route: 048
     Dates: start: 20171219, end: 20180103
  5. PREVENCOR 10 MG COMPRIMIDOS RECUBIERTOS CON PELICULA , 28 COMPRIMIDOS [Concomitant]
     Indication: DYSLIPIDAEMIA
     Dosage: 10 MG 1 DAYS
     Route: 048
     Dates: start: 20130715, end: 20180103
  6. ADIRO 100 MG COMPRIMIDOS GASTRORRESISTENTES EFG, 30 COMPRIMIDOS (POLIP [Concomitant]
     Active Substance: ASPIRIN
     Indication: ANGINA PECTORIS
     Dosage: 100 MG 1 DAYS
     Route: 048
     Dates: start: 20171219

REACTIONS (2)
  - Drug interaction [Unknown]
  - Hyponatraemia [Recovered/Resolved]

NARRATIVE: CASE EVENT DATE: 201801
